FAERS Safety Report 16703860 (Version 1)
Quarter: 2019Q3

REPORT INFORMATION
  Report Type: Report from Study
  Country: NO (occurrence: NO)
  Receive Date: 20190814
  Receipt Date: 20190814
  Transmission Date: 20191004
  Serious: Yes (Hospitalization)
  Sender: FDA-Public Use
  Company Number: NO-ROCHE-2299636

PATIENT
  Age: 68 Year
  Sex: Female
  Weight: 56.2 kg

DRUGS (26)
  1. TIMOSAN [Concomitant]
     Active Substance: TIMOLOL MALEATE
     Indication: GLAUCOMA
     Route: 047
  2. DERMOVATE [Concomitant]
     Active Substance: CLOBETASOL
     Dosage: 1 OTHER
     Route: 061
     Dates: start: 20190115
  3. DEXAMETASON [DEXAMETHASONE] [Concomitant]
     Active Substance: DEXAMETHASONE
     Route: 048
     Dates: start: 20190401
  4. SOMAC [Concomitant]
     Active Substance: PANTOPRAZOLE SODIUM
     Route: 048
     Dates: start: 20121001
  5. METFORMIN [Concomitant]
     Active Substance: METFORMIN HYDROCHLORIDE
     Indication: DIABETES MELLITUS
     Route: 065
  6. TAFLOTAN [Concomitant]
     Active Substance: TAFLUPROST
     Indication: GLAUCOMA
     Dosage: 15MCG/ML
     Route: 047
  7. PARACETAMOL [Concomitant]
     Active Substance: ACETAMINOPHEN
     Indication: NECK PAIN
     Route: 048
     Dates: start: 20180605
  8. VENETOCLAX. [Suspect]
     Active Substance: VENETOCLAX
     Indication: PLASMA CELL MYELOMA
     Dosage: ON 27/MAR/2019, SHE RECEIVED THE MOST RECENT DOSE (800 MG) OF VENETOCLAX PRIOR TO AE (ADVERSE EVENT)
     Route: 048
     Dates: start: 20180508
  9. COBIMETINIB. [Suspect]
     Active Substance: COBIMETINIB
     Indication: PLASMA CELL MYELOMA
     Dosage: ON 27/MAR/2019, SHE RECEIVED THE MOST RECENT DOSE (40 MG) OF COBIMETINIB PRIOR TO AE (ADVERSE EVENT)
     Route: 048
     Dates: start: 20180508
  10. LOPERAMID [Concomitant]
     Active Substance: LOPERAMIDE
     Indication: DIARRHOEA
     Route: 048
     Dates: start: 20180508
  11. ZOFRAN [Concomitant]
     Active Substance: ONDANSETRON HYDROCHLORIDE
     Indication: NAUSEA
     Route: 048
     Dates: start: 20180508
  12. NIFEREX FORTE [Concomitant]
     Indication: ANAEMIA
     Route: 048
     Dates: start: 20180116
  13. RENITEC COMP [Concomitant]
     Active Substance: ENALAPRIL MALEATE\HYDROCHLOROTHIAZIDE
     Indication: HYPERTENSION
     Dosage: 20MG/12,5MG
     Route: 048
  14. CETIRIZIN [Concomitant]
     Active Substance: CETIRIZINE HYDROCHLORIDE
     Route: 048
  15. ATEZOLIZUMAB. [Suspect]
     Active Substance: ATEZOLIZUMAB
     Indication: PLASMA CELL MYELOMA
     Dosage: ON 26/MAR/2019, SHE RECEIVED THE MOST RECENT DOSE (840 MG) OF ATEZOLIZUMAB PRIOR TO AE (ADVERSE EVEN
     Route: 041
  16. VALTREX [Concomitant]
     Active Substance: VALACYCLOVIR HYDROCHLORIDE
     Indication: HERPES ZOSTER
     Route: 048
     Dates: start: 20190401
  17. CARFILZOMIB [Concomitant]
     Active Substance: CARFILZOMIB
     Route: 048
     Dates: start: 20190401
  18. FUROSEMID [FUROSEMIDE] [Concomitant]
     Active Substance: FUROSEMIDE
     Route: 042
     Dates: start: 20190403
  19. SIMVASTATIN. [Concomitant]
     Active Substance: SIMVASTATIN
     Route: 048
  20. LACTULOSE. [Concomitant]
     Active Substance: LACTULOSE
     Route: 048
  21. OXYNORM [Concomitant]
     Active Substance: OXYCODONE HYDROCHLORIDE
     Indication: PAIN
     Route: 048
  22. CANODERM [Concomitant]
     Active Substance: UREA
     Indication: DRY SKIN
     Route: 061
     Dates: start: 20181023
  23. KALEORID [Concomitant]
     Active Substance: POTASSIUM CHLORIDE
     Route: 048
  24. TARGINIQ ER [Concomitant]
     Active Substance: NALOXONE HYDROCHLORIDE\OXYCODONE HYDROCHLORIDE
     Indication: BACK PAIN
     Dosage: 5MG/2,5MG
     Route: 048
     Dates: start: 20171103
  25. CARFILZOMIB [Concomitant]
     Active Substance: CARFILZOMIB
     Route: 048
     Dates: start: 20190401
  26. KONAKION [Concomitant]
     Active Substance: PHYTONADIONE
     Route: 048
     Dates: start: 20190405, end: 20190405

REACTIONS (1)
  - Infection [Recovered/Resolved]

NARRATIVE: CASE EVENT DATE: 20190403
